FAERS Safety Report 24458087 (Version 1)
Quarter: 2024Q4

REPORT INFORMATION
  Report Type: Spontaneous
  Country: CN (occurrence: CN)
  Receive Date: 20241018
  Receipt Date: 20241018
  Transmission Date: 20250115
  Serious: No
  Sender: ROCHE
  Company Number: CN-BoehringerIngelheim-2023-BI-269083

PATIENT
  Age: 80 Year
  Sex: Male
  Weight: 46.0 kg

DRUGS (3)
  1. ALTEPLASE [Suspect]
     Active Substance: ALTEPLASE
     Indication: Thrombolysis
     Dosage: 10% SLOW INTRAVENOUS INFUSION FOR 1 MINUTE?TOTAL DOSE: 40MG
     Route: 041
     Dates: start: 20231023, end: 20231023
  2. ALTEPLASE [Suspect]
     Active Substance: ALTEPLASE
     Dosage: 90% (REMAINING) SLOW INTRAVENOUS INFUSION FOR 1 HOUR?TOTAL DOSE: 40MG
     Route: 042
     Dates: start: 20231023, end: 20231023
  3. SODIUM CHLORIDE [Concomitant]
     Active Substance: SODIUM CHLORIDE
     Indication: Drug therapy
     Route: 042
     Dates: start: 20231023, end: 20231023

REACTIONS (1)
  - Gingival bleeding [Recovering/Resolving]

NARRATIVE: CASE EVENT DATE: 20231023
